FAERS Safety Report 9713890 (Version 1)
Quarter: 2013Q4

REPORT INFORMATION
  Report Type: Spontaneous
  Country: ID (occurrence: ID)
  Receive Date: 20131126
  Receipt Date: 20131126
  Transmission Date: 20140711
  Serious: Yes (Hospitalization)
  Sender: FDA-Public Use
  Company Number: ID-GLAXOSMITHKLINE-B0947533A

PATIENT
  Age: 8 Year
  Sex: Male

DRUGS (2)
  1. VENTOLIN [Suspect]
     Indication: ASTHMA
     Dosage: 2.5MG PER DAY
     Route: 055
     Dates: start: 201307, end: 201307
  2. UNSPECIFIED DRUG [Concomitant]
     Route: 048

REACTIONS (1)
  - Lethargy [Unknown]
